FAERS Safety Report 26005932 (Version 2)
Quarter: 2025Q4

REPORT INFORMATION
  Report Type: Report from Study
  Country: CA (occurrence: CA)
  Receive Date: 20251106
  Receipt Date: 20251224
  Transmission Date: 20260118
  Serious: Yes (Other)
  Sender: DAIICHI
  Company Number: CA-AstraZeneca-CH-00981037A

PATIENT
  Sex: Male
  Weight: 85.5 kg

DRUGS (10)
  1. ENHERTU [Suspect]
     Active Substance: FAM-TRASTUZUMAB DERUXTECAN-NXKI
     Indication: Metastatic neoplasm
     Dosage: 467 MG, ONCE EVERY 3 WK
     Route: 042
     Dates: start: 20251015
  2. PANTOPRAZOLE SODIUM [Concomitant]
     Active Substance: PANTOPRAZOLE SODIUM
     Indication: Product used for unknown indication
     Dosage: UNK
     Route: 065
  3. TYLENOL [Concomitant]
     Active Substance: ACETAMINOPHEN
     Indication: Product used for unknown indication
     Dosage: UNK UNK, AS NEEDED (PRN)
     Route: 065
  4. FRAGMIN [Concomitant]
     Active Substance: DALTEPARIN SODIUM
     Indication: Product used for unknown indication
     Dosage: 1200 IU, QD
     Route: 065
  5. CHOLECALCIFEROL [Concomitant]
     Active Substance: CHOLECALCIFEROL
     Indication: Product used for unknown indication
     Dosage: UNK
     Route: 065
  6. VITAMIN K [CALCIUM PHOSPHATE DIBASIC;PHYTOMENADIONE] [Concomitant]
     Indication: Product used for unknown indication
     Dosage: UNK
     Route: 065
  7. ZINC [ZINC LACTATE] [Concomitant]
     Indication: Product used for unknown indication
     Dosage: UNK
     Route: 065
  8. MAGNESIUM HYDROXIDE [Concomitant]
     Active Substance: MAGNESIUM HYDROXIDE
     Indication: Product used for unknown indication
     Dosage: UNK
     Route: 065
  9. HERBALS\TURMERIC [Concomitant]
     Active Substance: HERBALS\TURMERIC
     Indication: Product used for unknown indication
     Dosage: UNK
     Route: 065
  10. OMEGA 3 [COLECALCIFEROL;DOCOSAHEXAENOIC ACID;EICOSAPENTAENOIC ACID;RET [Concomitant]
     Indication: Product used for unknown indication
     Dosage: UNK
     Route: 065

REACTIONS (11)
  - Post procedural contusion [Unknown]
  - Enterococcal infection [Unknown]
  - Malignant neoplasm progression [Unknown]
  - Metastases to liver [Unknown]
  - Fatigue [Unknown]
  - Nausea [Recovered/Resolved]
  - Haematuria [Unknown]
  - Haematuria [Recovered/Resolved]
  - Urinary tract infection [Recovered/Resolved]
  - Lethargy [Recovered/Resolved]
  - Alopecia [Recovered/Resolved]
